FAERS Safety Report 5448750-2 (Version None)
Quarter: 2007Q3

REPORT INFORMATION
  Report Type: 
  Country: None (occurrence: None)
  Receive Date: 20070911
  Receipt Date: 20070907
  Transmission Date: 20080115
  Serious: Yes (Hospitalization)
  Sender: FDA-Public Use
  Company Number: B0486286A

PATIENT
  Age: 24 Year
  Sex: Female

DRUGS (2)
  1. CLAMOXYL [Suspect]
     Dosage: 500MG THREE TIMES PER DAY
  2. PIROXICAM [Suspect]
     Indication: DRUG ADMINISTRATION ERROR
     Dosage: 2CAP THREE TIMES PER DAY
     Route: 048
     Dates: start: 20060726, end: 20060727

REACTIONS (2)
  - DRUG DISPENSING ERROR [None]
  - WRONG DRUG ADMINISTERED [None]
